FAERS Safety Report 6756442-2 (Version None)
Quarter: 2010Q2

REPORT INFORMATION
  Report Type: 
  Country: None (occurrence: None)
  Receive Date: 20100604
  Receipt Date: 20100601
  Transmission Date: 20101027
  Serious: Yes (Hospitalization)
  Sender: FDA-Public Use
  Company Number: A0862250A

PATIENT
  Age: 47 Year
  Sex: Female

DRUGS (3)
  1. ADVAIR DISKUS 100/50 [Suspect]
     Indication: CHRONIC OBSTRUCTIVE PULMONARY DISEASE
     Dosage: 1PUFF VARIABLE DOSE
     Route: 055
     Dates: start: 20090601
  2. ALBUTEROL SULATE [Concomitant]
  3. IPRATROPIUM BROMIDE (NEB) [Concomitant]

REACTIONS (5)
  - BRONCHITIS [None]
  - PNEUMONIA [None]
  - PRODUCT QUALITY ISSUE [None]
  - RESPIRATORY DISORDER [None]
  - SECRETION DISCHARGE [None]
